FAERS Safety Report 17093855 (Version 1)
Quarter: 2019Q4

REPORT INFORMATION
  Report Type: Spontaneous
  Country: US (occurrence: US)
  Receive Date: 20191129
  Receipt Date: 20191129
  Transmission Date: 20200122
  Serious: No
  Sender: FDA-Public Use
  Company Number: US-TEVA-2019-US-1143809

PATIENT
  Sex: Female

DRUGS (1)
  1. AIRDUO RESPICLICK [Suspect]
     Active Substance: FLUTICASONE PROPIONATE\SALMETEROL XINAFOATE
     Dosage: FLUTICASONE PROPIONATE 55 MICROGRAM/SALMETEROL 14 MICROGRAM
     Route: 065

REACTIONS (4)
  - Asthma [Unknown]
  - Feeling abnormal [Unknown]
  - Product taste abnormal [Unknown]
  - Drug delivery system issue [Unknown]
